FAERS Safety Report 8004073-9 (Version None)
Quarter: 2011Q4

REPORT INFORMATION
  Report Type: 
  Country: None (occurrence: None)
  Receive Date: 20111222
  Receipt Date: 20111216
  Transmission Date: 20120403
  Serious: Yes (Other)
  Sender: FDA-Public Use
  Company Number: DE-GILEAD-2011-0048235

PATIENT
  Sex: Male

DRUGS (5)
  1. VIREAD [Suspect]
     Indication: HIV INFECTION
     Dosage: 245 MG, QD
  2. BISOPROLOL FUMARATE [Concomitant]
     Indication: HYPERTENSION
     Dosage: 2.5 MG, QD
  3. EFFIENT [Concomitant]
     Indication: HIV INFECTION
     Dosage: 10 MG, QD
  4. PRAVASTATIN [Concomitant]
     Indication: LIPID METABOLISM DISORDER
     Dosage: 40 MG, QD
  5. EPIVIR [Concomitant]
     Indication: HIV INFECTION
     Dosage: 300 MG, QD

REACTIONS (2)
  - PLATELET COUNT INCREASED [None]
  - POLYCYTHAEMIA VERA [None]
